FAERS Safety Report 19924799 (Version 1)
Quarter: 2021Q4

REPORT INFORMATION
  Report Type: Spontaneous
  Country: US (occurrence: US)
  Receive Date: 20211006
  Receipt Date: 20211006
  Transmission Date: 20220303
  Serious: No
  Sender: FDA-Public Use
  Company Number: US-JNJFOC-20210938303

PATIENT
  Age: 51 Year
  Sex: Female
  Weight: 79.38 kg

DRUGS (19)
  1. MOTRIN [Suspect]
     Active Substance: IBUPROFEN
     Indication: Migraine
     Dosage: 800MG
     Route: 065
  2. MOTRIN [Suspect]
     Active Substance: IBUPROFEN
     Indication: Arthritis
  3. COVID-19 VACCINE [Concomitant]
     Indication: Product used for unknown indication
     Dosage: AT THE TOP OF LEFT UPPER ARM?FIRST DOSE
     Route: 065
     Dates: start: 20210228
  4. COVID-19 VACCINE [Concomitant]
     Dosage: SECOND DOSE
     Route: 065
     Dates: start: 20210322
  5. COVID-19 VACCINE [Concomitant]
     Dosage: THIRD DOSE
     Route: 065
     Dates: start: 20210818
  6. BUPROPION [Concomitant]
     Active Substance: BUPROPION
     Indication: Product used for unknown indication
     Dosage: 150MG TABLET
     Route: 065
  7. LIPITOR [Concomitant]
     Active Substance: ATORVASTATIN CALCIUM
     Indication: Blood cholesterol
     Dosage: 80MG AT NIGHT, IT IS FOR 30 YEARS
     Route: 065
  8. AMARYL [Concomitant]
     Active Substance: GLIMEPIRIDE
     Indication: Diabetes mellitus
     Dosage: 4MG, IT HAS BEEN TAKING FOR 30 YEARS
     Route: 065
  9. SYNTHROID [Concomitant]
     Active Substance: LEVOTHYROXINE SODIUM
     Indication: Product used for unknown indication
     Dosage: 175MCG, TAKES?AROUND 12 OR 1IN THE MORNING, WHEN SHE WAKES UP TO SWALLOW IT. SHE CAN^T EAT 2 HOURS B
     Route: 065
  10. LATUDA [Concomitant]
     Active Substance: LURASIDONE HYDROCHLORIDE
     Indication: Bipolar disorder
     Dosage: 20MG, HAS BEEN TAKING FOR 10 YEARS
     Route: 065
  11. TOPROL XL [Concomitant]
     Active Substance: METOPROLOL SUCCINATE
     Indication: Blood pressure measurement
     Dosage: 50MG ONCE A DAY
     Route: 065
  12. PROCARDIA [Concomitant]
     Active Substance: NIFEDIPINE
     Indication: Blood pressure measurement
     Dosage: 30MG
     Route: 065
  13. ACCUPRIL [Concomitant]
     Active Substance: QUINAPRIL HYDROCHLORIDE
     Indication: Blood pressure measurement
     Dosage: 40MG
     Route: 065
  14. TOPAMAX [Concomitant]
     Active Substance: TOPIRAMATE
     Indication: Weight decreased
     Dosage: 200MG AT NIGHT EVERY DAY
     Route: 065
  15. TOPAMAX [Concomitant]
     Active Substance: TOPIRAMATE
     Indication: Bipolar disorder
  16. TRADJENTA [Concomitant]
     Active Substance: LINAGLIPTIN
     Indication: Diabetes mellitus
     Dosage: 5MG
     Route: 065
  17. TRAZODONE [Concomitant]
     Active Substance: TRAZODONE HYDROCHLORIDE
     Indication: Initial insomnia
     Dosage: 150MG AT NIGHT
     Route: 065
  18. TRAZODONE [Concomitant]
     Active Substance: TRAZODONE HYDROCHLORIDE
     Indication: Drug therapy
  19. VASCEPA [Concomitant]
     Active Substance: ICOSAPENT ETHYL
     Indication: Blood triglycerides
     Dosage: 2 CAPSULES IN MORNING, 2 CAPSULES AT NIGHT, HAS ALMOST BEEN ON 2 YEARS
     Route: 065

REACTIONS (4)
  - Chest discomfort [Unknown]
  - Vision blurred [Unknown]
  - Chest pain [Unknown]
  - Dizziness [Unknown]

NARRATIVE: CASE EVENT DATE: 20210909
